FAERS Safety Report 8791026 (Version 1)
Quarter: 2012Q4

REPORT INFORMATION
  Report Type: Spontaneous
  Country: US (occurrence: None)
  Receive Date: 20120907
  Receipt Date: 20120907
  Transmission Date: 20130627
  Serious: Yes (Other)
  Sender: FDA-Public Use
  Company Number: 204600032

PATIENT
  Age: 68 Year
  Sex: Female

DRUGS (1)
  1. THERATEARS LUBRICANT [Suspect]
     Indication: DRY EYES

REACTIONS (2)
  - Injury associated with device [None]
  - Eye injury [None]
